FAERS Safety Report 15811544 (Version 1)
Quarter: 2019Q1

REPORT INFORMATION
  Report Type: Spontaneous
  Country: US (occurrence: US)
  Receive Date: 20190108
  Receipt Date: 20190108
  Transmission Date: 20190417
  Serious: No
  Sender: FDA-Public Use
  Company Number: None

PATIENT

DRUGS (2)
  1. ATROPINE ATROPINE [Suspect]
     Active Substance: ATROPINE
  2. EPINEPHRINE EPINEPHRINE [Suspect]
     Active Substance: EPINEPHRINE

REACTIONS (1)
  - Product label confusion [None]
